FAERS Safety Report 12657738 (Version 1)
Quarter: 2016Q3

REPORT INFORMATION
  Report Type: Spontaneous
  Country: CN (occurrence: CN)
  Receive Date: 20160816
  Receipt Date: 20160816
  Transmission Date: 20161109
  Serious: Yes (Other)
  Sender: FDA-Public Use
  Company Number: CN-ELI_LILLY_AND_COMPANY-CN201608006620

PATIENT
  Sex: Female

DRUGS (5)
  1. CLONAZEPAM. [Concomitant]
     Active Substance: CLONAZEPAM
     Indication: RESTLESS LEGS SYNDROME
     Dosage: 1 MG, QD
     Route: 065
  2. ZYPREXA [Suspect]
     Active Substance: OLANZAPINE
     Indication: SLEEP DISORDER
     Dosage: 1.67 MG, QD
     Route: 048
     Dates: start: 20160117, end: 20160126
  3. ZYPREXA [Suspect]
     Active Substance: OLANZAPINE
     Indication: RESTLESS LEGS SYNDROME
  4. GABAPENTIN. [Concomitant]
     Active Substance: GABAPENTIN
     Indication: RESTLESS LEGS SYNDROME
     Dosage: 300 MG, QD
     Route: 048
  5. PRAMIPEXOLE. [Concomitant]
     Active Substance: PRAMIPEXOLE
     Indication: RESTLESS LEGS SYNDROME
     Dosage: 0.25 MG, QD
     Route: 065

REACTIONS (4)
  - Face oedema [Recovering/Resolving]
  - Underdose [Unknown]
  - Oedema peripheral [Recovering/Resolving]
  - Off label use [Unknown]
